FAERS Safety Report 25603344 (Version 1)
Quarter: 2025Q3

REPORT INFORMATION
  Report Type: Spontaneous
  Country: JP (occurrence: JP)
  Receive Date: 20250724
  Receipt Date: 20250724
  Transmission Date: 20251021
  Serious: Yes (Hospitalization, Other)
  Sender: MERCK SHARP & DOHME LLC
  Company Number: JP-009507513-2312107

PATIENT
  Age: 75 Year
  Sex: Male

DRUGS (1)
  1. LAGEVRIO [Suspect]
     Active Substance: MOLNUPIRAVIR
     Indication: COVID-19 treatment
     Dosage: STRENGTH:  200 MG
     Route: 048

REACTIONS (4)
  - Dyspnoea [Recovered/Resolved]
  - Pneumonia bacterial [Unknown]
  - Cardiac failure [Unknown]
  - COVID-19 pneumonia [Unknown]
